FAERS Safety Report 4304404-7 (Version None)
Quarter: 2004Q1

REPORT INFORMATION
  Report Type: 
  Country: None (occurrence: None)
  Receive Date: 20040224
  Receipt Date: 20040212
  Transmission Date: 20041129
  Serious: Yes (Death, Hospitalization)
  Sender: FDA-Public Use
  Company Number: 163-20785-03100703

PATIENT
  Age: 64 Year
  Sex: Male

DRUGS (1)
  1. THALOMID [Suspect]
     Indication: NEURODERMATITIS
     Dosage: 50 MG, DAILY, ORAL
     Route: 048
     Dates: start: 20030616, end: 20030621

REACTIONS (3)
  - INFECTION [None]
  - LYMPHOMA [None]
  - MALIGNANT MELANOMA [None]
